FAERS Safety Report 9668573 (Version 1)
Quarter: 2013Q4

REPORT INFORMATION
  Report Type: Report from Study
  Country: US (occurrence: US)
  Receive Date: 20131105
  Receipt Date: 20131105
  Transmission Date: 20140711
  Serious: Yes (Other)
  Sender: FDA-Public Use
  Company Number: US-ROCHE-1294263

PATIENT
  Sex: Female

DRUGS (15)
  1. LUCENTIS [Suspect]
     Indication: DIABETIC RETINOPATHY
     Dosage: RIGHT EYE
     Route: 065
     Dates: start: 20130814, end: 20130814
  2. LUCENTIS [Suspect]
     Indication: AGE-RELATED MACULAR DEGENERATION
     Dosage: LEFT EYE
     Route: 065
     Dates: start: 20131023, end: 20131023
  3. LUCENTIS [Suspect]
     Indication: CATARACT NUCLEAR
  4. AVASTIN [Suspect]
     Indication: DIABETIC RETINOPATHY
     Dosage: X1, LEFT EYE
     Route: 065
     Dates: start: 20120521, end: 20120521
  5. AVASTIN [Suspect]
     Indication: AGE-RELATED MACULAR DEGENERATION
     Dosage: X2, RIGHT EYE
     Route: 065
     Dates: start: 20120806, end: 20120806
  6. AVASTIN [Suspect]
     Indication: CATARACT NUCLEAR
  7. ASA [Concomitant]
     Route: 065
  8. FUROSEMIDE [Concomitant]
  9. GLIMEPIRIDE [Concomitant]
  10. LISINOPRIL [Concomitant]
  11. SIMVASTATIN [Concomitant]
  12. METFORMIN HYDROCHLORIDE [Concomitant]
     Route: 065
  13. TROPICAMIDE [Concomitant]
     Route: 065
  14. PHENYLEPHRINE [Concomitant]
     Route: 065
  15. PROPARACAINE [Concomitant]
     Route: 065

REACTIONS (4)
  - Cystoid macular oedema [Unknown]
  - Retinal cyst [Unknown]
  - Eye laser scar [Unknown]
  - Retinal haemorrhage [Unknown]
